FAERS Safety Report 7888661-6 (Version None)
Quarter: 2011Q4

REPORT INFORMATION
  Report Type: 
  Country: None (occurrence: None)
  Receive Date: 20111103
  Receipt Date: 20111021
  Transmission Date: 20120403
  Serious: Yes (Other)
  Sender: FDA-Public Use
  Company Number: IT-CELGENEUS-083-21880-11102559

PATIENT
  Sex: Female

DRUGS (1)
  1. REVLIMID [Suspect]
     Indication: MYELOMA RECURRENCE
     Dosage: 25 MILLIGRAM
     Route: 048
     Dates: start: 20110727, end: 20110816

REACTIONS (1)
  - AUTOIMMUNE THROMBOCYTOPENIA [None]
